FAERS Safety Report 6907107-5 (Version None)
Quarter: 2010Q3

REPORT INFORMATION
  Report Type: 
  Country: None (occurrence: None)
  Receive Date: 20100804
  Receipt Date: 20090405
  Transmission Date: 20110219
  Serious: Yes (Other)
  Sender: FDA-Public Use
  Company Number: US-PFIZER INC-2009173088

PATIENT
  Sex: Male

DRUGS (1)
  1. ZARONTIN [Suspect]
     Indication: CONVULSION
     Dates: start: 20090201, end: 20090201

REACTIONS (1)
  - COMPLEX PARTIAL SEIZURES [None]
